FAERS Safety Report 7184772-1 (Version None)
Quarter: 2010Q4

REPORT INFORMATION
  Report Type: 
  Country: None (occurrence: None)
  Receive Date: 20101222
  Receipt Date: 20100525
  Transmission Date: 20110411
  Serious: No
  Sender: FDA-Public Use
  Company Number: US-AMGEN-KDL414149

PATIENT

DRUGS (12)
  1. ENBREL [Suspect]
     Indication: PRODUCT USED FOR UNKNOWN INDICATION
     Dosage: 50 MG, QWK
     Route: 058
  2. METHOTREXATE [Concomitant]
  3. PANTOPRAZOLE SODIUM [Concomitant]
     Dosage: 20 MG, UNK
  4. HYDROXYCHLOROQUINE SULFATE [Concomitant]
     Dosage: 200 MG, UNK
  5. SIMVASTATIN [Concomitant]
     Dosage: 40 MG, UNK
  6. FOLIC ACID [Concomitant]
     Dosage: 1 MG, UNK
  7. BRIMONIDINE TARTRATE [Concomitant]
     Dosage: .2 %, UNK
  8. LEVOTHYROXINE SODIUM [Concomitant]
     Dosage: 125 A?G, UNK
  9. TOCOPHEROL CONCENTRATE CAP [Concomitant]
     Dosage: 100 IU, UNK
  10. TRIPLE FLEX [Concomitant]
     Dosage: UNK UNK, UNK
  11. CALCIUM WITH VITAMIN D [Concomitant]
     Dosage: UNK UNK, UNK
  12. MULTI-VITAMINS [Concomitant]
     Dosage: UNK UNK, UNK

REACTIONS (2)
  - DIZZINESS [None]
  - MUSCLE SPASMS [None]
